FAERS Safety Report 16710896 (Version 1)
Quarter: 2019Q3

REPORT INFORMATION
  Report Type: Spontaneous
  Country: CN (occurrence: CN)
  Receive Date: 20190816
  Receipt Date: 20190816
  Transmission Date: 20191004
  Serious: Yes (Other)
  Sender: FDA-Public Use
  Company Number: CN-PFIZER INC-2019347789

PATIENT
  Age: 7 Year
  Sex: Male
  Weight: 25 kg

DRUGS (1)
  1. ZITHROMAX [Suspect]
     Active Substance: AZITHROMYCIN DIHYDRATE
     Indication: PNEUMONIA
     Dosage: 250 MG, 1X/DAY
     Route: 048
     Dates: start: 20190730, end: 20190730

REACTIONS (5)
  - Diarrhoea [Recovering/Resolving]
  - Product use issue [Unknown]
  - Abdominal pain upper [Recovering/Resolving]
  - Faeces discoloured [Recovering/Resolving]
  - Off label use [Unknown]

NARRATIVE: CASE EVENT DATE: 20190730
